FAERS Safety Report 6520240-5 (Version None)
Quarter: 2009Q4

REPORT INFORMATION
  Report Type: 
  Country: None (occurrence: None)
  Receive Date: 20091229
  Receipt Date: 20090917
  Transmission Date: 20100525
  Serious: No
  Sender: FDA-Public Use
  Company Number: US-KINGPHARMUSA00001-K200901148

PATIENT
  Age: 54 Year
  Sex: Male
  Weight: 111.11 kg

DRUGS (3)
  1. CORGARD [Suspect]
     Indication: HYPERTENSION
     Dosage: 80 MG, QD
     Route: 048
     Dates: start: 20080101
  2. CORGARD [Suspect]
     Dosage: 40 MG, QD
     Route: 048
     Dates: start: 20080101
  3. PRILOSEC [Concomitant]
     Dosage: UNK
     Route: 048

REACTIONS (4)
  - ABDOMINAL PAIN [None]
  - HEADACHE [None]
  - HYPERHIDROSIS [None]
  - MUSCLE SPASMS [None]
